FAERS Safety Report 5247423-9 (Version None)
Quarter: 2007Q1

REPORT INFORMATION
  Report Type: 
  Country: None (occurrence: None)
  Receive Date: 20070223
  Receipt Date: 20070223
  Transmission Date: 20070707
  Serious: Yes (Hospitalization)
  Sender: FDA-Public Use
  Company Number: None

PATIENT
  Age: 69 Year

DRUGS (2)
  1. SPIRONOLACTONE [Suspect]
     Dosage: 50 MG PO BID
     Route: 048
  2. NAPROXEN [Suspect]
     Dosage: 500 MG PO BID
     Route: 048

REACTIONS (2)
  - HYPERKALAEMIA [None]
  - RENAL FAILURE [None]
